FAERS Safety Report 8841378 (Version 1)
Quarter: 2012Q4

REPORT INFORMATION
  Report Type: 
  Country: US (occurrence: US)
  Receive Date: 20121015
  Receipt Date: 20121015
  Transmission Date: 20130627
  Serious: Yes (Other)
  Sender: FDA-Public Use
  Company Number: US-VERTEX PHARMACEUTICAL INC.-2012-022492

PATIENT
  Age: 63 Year
  Sex: Female

DRUGS (13)
  1. VX-950 [Suspect]
     Indication: HEPATITIS C
     Dosage: 750 mg, tid
     Route: 048
  2. PEGASYS [Suspect]
     Indication: HEPATITIS C
     Dosage: 180 ?g, UNK
  3. RIBAVIRIN [Suspect]
     Indication: HEPATITIS C
     Dosage: 200 mg, UNK
  4. CYCLOBENZAPRINE [Concomitant]
     Dosage: 5 mg, UNK
  5. PREPARATION H                      /00611001/ [Concomitant]
  6. ZYRTEC [Concomitant]
     Dosage: 5 mg, UNK
  7. PATANOL S [Concomitant]
  8. MULTIVITAMIN                       /00097801/ [Concomitant]
  9. FLONASE [Concomitant]
  10. FISH OIL [Concomitant]
  11. CALCIUM + D + K [Concomitant]
     Dosage: 750 mg, UNK
  12. VIVELLE                            /00045401/ [Concomitant]
     Dosage: 0.05 mg, UNK
  13. IBUPROFEN [Concomitant]
     Dosage: 200 mg, UNK

REACTIONS (5)
  - Skin cancer [Unknown]
  - Pyrexia [Unknown]
  - Dysgeusia [Unknown]
  - Vomiting [Unknown]
  - Nausea [Unknown]
